FAERS Safety Report 5528946-1 (Version None)
Quarter: 2007Q4

REPORT INFORMATION
  Report Type: 
  Country: None (occurrence: None)
  Receive Date: 20071126
  Receipt Date: 20071115
  Transmission Date: 20080405
  Serious: Yes (Hospitalization)
  Sender: FDA-Public Use
  Company Number: 2007-167796-NL

PATIENT
  Sex: Female

DRUGS (2)
  1. ETONOGESTREL [Suspect]
     Dosage: DF;
     Dates: end: 20070821
  2. ETONOGRDTREL [Suspect]
     Dates: end: 20070821

REACTIONS (6)
  - ACNE [None]
  - DIZZINESS [None]
  - FALL [None]
  - FATIGUE [None]
  - VERTIGO [None]
  - WEIGHT INCREASED [None]
